FAERS Safety Report 9821212 (Version 2)
Quarter: 2014Q1

REPORT INFORMATION
  Report Type: Spontaneous
  Country: US (occurrence: US)
  Receive Date: 20140116
  Receipt Date: 20140116
  Transmission Date: 20141002
  Serious: No
  Sender: FDA-Public Use
  Company Number: US-GILEAD-2010-0033544

PATIENT
  Age: 71 Year
  Sex: Male

DRUGS (7)
  1. LETAIRIS [Suspect]
     Indication: PULMONARY HYPERTENSION
     Route: 048
     Dates: start: 20090520, end: 20090721
  2. AMLODIPINE [Concomitant]
  3. DIGOXIN [Concomitant]
  4. WARFARIN [Concomitant]
  5. OXYGEN [Concomitant]
  6. GLYBURIDE [Concomitant]
  7. POTASSIUM [Concomitant]

REACTIONS (1)
  - Drug ineffective [Recovered/Resolved]
